FAERS Safety Report 7675659-6 (Version None)
Quarter: 2011Q3

REPORT INFORMATION
  Report Type: 
  Country: None (occurrence: None)
  Receive Date: 20110810
  Receipt Date: 20110728
  Transmission Date: 20111222
  Serious: Yes (Other)
  Sender: FDA-Public Use
  Company Number: US-BAYER-200829333NA

PATIENT
  Sex: Male
  Weight: 81.818 kg

DRUGS (52)
  1. MAGNEVIST [Suspect]
     Indication: NUCLEAR MAGNETIC RESONANCE IMAGING
     Dosage: UNK
     Dates: start: 20040504, end: 20040504
  2. GADOLINIUM IN UNSPECIFIED DRUG [Suspect]
     Dosage: UNK
     Dates: start: 20001026
  3. GADOLINIUM IN UNSPECIFIED DRUG [Suspect]
     Dosage: UNK
     Dates: start: 20050315
  4. NEURONTIN [Concomitant]
  5. PROGRAF [Concomitant]
     Dosage: 0.5 MG, BID
  6. AVAPRO [Concomitant]
  7. PROHANCE [Suspect]
     Indication: NUCLEAR MAGNETIC RESONANCE IMAGING
     Dosage: 19 ML, UNK
     Dates: start: 20031116
  8. GADOLINIUM IN UNSPECIFIED DRUG [Suspect]
     Indication: NUCLEAR MAGNETIC RESONANCE IMAGING
     Dates: start: 20050304, end: 20050304
  9. GADOLINIUM IN UNSPECIFIED DRUG [Suspect]
     Dosage: UNK
     Dates: start: 20010904
  10. ASPIRIN [Concomitant]
  11. ASPIRIN [Concomitant]
     Dosage: 81 MG, QD
  12. DEMADEX [Concomitant]
  13. GADOLINIUM IN UNSPECIFIED DRUG [Suspect]
     Dosage: UNK
     Dates: start: 20030402
  14. GADOLINIUM IN UNSPECIFIED DRUG [Suspect]
     Dosage: UNK
     Dates: start: 20031116
  15. ALLOPURINOL [Concomitant]
  16. GABAPENTIN [Concomitant]
     Dosage: 300 MG, QD
  17. IMDUR [Concomitant]
  18. DIOVAN [Concomitant]
  19. STARLIX [Concomitant]
  20. GADOLINIUM IN UNSPECIFIED DRUG [Suspect]
     Dosage: UNK
     Dates: start: 20040504
  21. RENAGEL [Concomitant]
  22. COREG [Concomitant]
     Dosage: 3.125 MG, BID
  23. PIOGLITAZONE [Concomitant]
     Dosage: 45 MG, QD
  24. NOVOLOG MIX 70/30 [Concomitant]
  25. INDERAL [Concomitant]
  26. MAGNEVIST [Suspect]
     Indication: ANGIOPLASTY
     Dosage: 80 ML, UNK
     Dates: start: 20050315
  27. OMNISCAN [Suspect]
     Indication: NUCLEAR MAGNETIC RESONANCE IMAGING
     Dosage: 20 ML, UNK
     Dates: start: 20030402, end: 20110402
  28. CELLCEPT [Concomitant]
     Dosage: DAILY DOSE 500 MG
  29. LASIX [Concomitant]
     Dosage: 40 MG, BID
  30. IRON SUPPLEMENT [Concomitant]
  31. AMBIEN [Concomitant]
  32. METOPROLOL TARTRATE [Concomitant]
  33. OMNISCAN [Suspect]
     Indication: ANGIOGRAM
     Dosage: UNK
     Dates: start: 20040504, end: 20040504
  34. MULTIHANCE [Suspect]
     Indication: NUCLEAR MAGNETIC RESONANCE IMAGING
  35. GADOLINIUM IN UNSPECIFIED DRUG [Suspect]
     Dosage: UNK
     Dates: start: 20050304
  36. ARANESP [Concomitant]
  37. NEPHROVITE [VIT C,VIT H,B5,B12,B9,B3,B6,B2,B1 HCL] [Concomitant]
  38. COZAAR [Concomitant]
     Dosage: 50 MG, QD
  39. FLOMAX [Concomitant]
  40. LOPRESSOR [Concomitant]
  41. DILTIAZEM [Concomitant]
  42. MAGNEVIST [Suspect]
     Indication: ANGIOGRAM
     Dosage: UNK
     Dates: start: 20050304, end: 20050304
  43. OPTIMARK [Suspect]
     Indication: NUCLEAR MAGNETIC RESONANCE IMAGING
  44. PROHANCE [Suspect]
  45. VISIPAQUE [Suspect]
     Indication: ANGIOPLASTY
     Dosage: 100 ML, UNK
     Dates: start: 20050315
  46. GADOLINIUM IN UNSPECIFIED DRUG [Suspect]
     Dosage: UNK
     Dates: start: 19901213
  47. GADOLINIUM IN UNSPECIFIED DRUG [Suspect]
     Dosage: UNK
     Dates: start: 20031010
  48. LIPITOR [Concomitant]
     Dosage: 40 MG, QD
  49. PLAVIX [Concomitant]
     Dosage: DAILY DOSE 75 MG
  50. PREDNISONE [Concomitant]
     Dosage: DAILY DOSE 5 MG
  51. JANUVIA [Concomitant]
     Dosage: 100 MG, QD
  52. RANEXA [Concomitant]
     Dosage: 500 MG, QD

REACTIONS (10)
  - INJURY [None]
  - PAIN [None]
  - ANXIETY [None]
  - MUSCULAR WEAKNESS [None]
  - GENERAL PHYSICAL HEALTH DETERIORATION [None]
  - EMOTIONAL DISTRESS [None]
  - BONE PAIN [None]
  - RENAL FAILURE CHRONIC [None]
  - NEPHROGENIC SYSTEMIC FIBROSIS [None]
  - MOBILITY DECREASED [None]
